FAERS Safety Report 23252376 (Version 1)
Quarter: 2023Q4

REPORT INFORMATION
  Report Type: Spontaneous
  Country: US (occurrence: None)
  Receive Date: 20231130
  Receipt Date: 20231130
  Transmission Date: 20240110
  Serious: Yes (Hospitalization)
  Sender: FDA-Public Use
  Company Number: None

PATIENT
  Age: 54 Year
  Sex: Male

DRUGS (6)
  1. XYNTHA [Suspect]
     Active Substance: ANTIHEMOPHILIC FACTOR, HUMAN RECOMBINANT RESIDUES 743-1636 DELETED
     Indication: Factor VIII deficiency
     Dosage: 2000 UNITS PRN IV
     Route: 042
     Dates: start: 202306
  2. XYNTHA [Suspect]
     Active Substance: ANTIHEMOPHILIC FACTOR, HUMAN RECOMBINANT RESIDUES 743-1636 DELETED
     Indication: Factor VIII deficiency
  3. DARUNAVIR [Concomitant]
     Active Substance: DARUNAVIR
  4. ISENTRESS [Concomitant]
     Active Substance: RALTEGRAVIR POTASSIUM
  5. SELZENTRY [Concomitant]
     Active Substance: MARAVIROC
  6. RITONAVIR [Concomitant]
     Active Substance: RITONAVIR

REACTIONS (6)
  - Pancreatitis [None]
  - Fall [None]
  - Limb injury [None]
  - Pain [None]
  - Haemorrhage [None]
  - HIV infection [None]

NARRATIVE: CASE EVENT DATE: 20231113
